FAERS Safety Report 15745480 (Version 1)
Quarter: 2018Q4

REPORT INFORMATION
  Report Type: Spontaneous
  Country: TR (occurrence: TR)
  Receive Date: 20181220
  Receipt Date: 20181220
  Transmission Date: 20190205
  Serious: Yes (Other)
  Sender: FDA-Public Use
  Company Number: TR-TEVA-2018-TR-991457

PATIENT
  Age: 9 Year
  Sex: Male

DRUGS (3)
  1. IRINOTECAN [Suspect]
     Active Substance: IRINOTECAN
     Indication: GLIOBLASTOMA MULTIFORME
     Dosage: UNKNOWN FORM STRENGTH, 125 MG/M2 IV; EVERY 2 WEEKS FOR 6 CYCLES
     Route: 042
  2. BEVACIZUMAB. [Suspect]
     Active Substance: BEVACIZUMAB
     Indication: GLIOBLASTOMA MULTIFORME
     Dosage: UNKNOWN FORM STRENGTH, 10 MG/KG IV; EVERY 2 WEEKS FOR 6 CYCLES
     Route: 042
  3. TEMOZOLOMIDE. [Suspect]
     Active Substance: TEMOZOLOMIDE
     Indication: GLIOBLASTOMA MULTIFORME
     Dosage: 200 MG/M2 DAILY; UNKNOWN FORM STRENGTH, 200 MG/M2/DAY PERORAL FOR 5 DAYS; EVERY 4 WEEKS FOR 10 CYCLE
     Route: 048

REACTIONS (1)
  - Drug ineffective [Unknown]
